FAERS Safety Report 7137905-7 (Version None)
Quarter: 2010Q4

REPORT INFORMATION
  Report Type: 
  Country: None (occurrence: None)
  Receive Date: 20101206
  Receipt Date: 20101201
  Transmission Date: 20110411
  Serious: Yes (Death)
  Sender: FDA-Public Use
  Company Number: IL-ASTRAZENECA-2010SE57142

PATIENT
  Age: 31 Year
  Sex: Male

DRUGS (5)
  1. SEROQUEL XR [Suspect]
     Indication: SCHIZOPHRENIA
     Route: 048
     Dates: start: 20101117
  2. HALIDOL [Concomitant]
     Route: 030
  3. HALIDOL [Concomitant]
     Route: 048
  4. DEPALEPT [Concomitant]
     Route: 048
  5. DEKINET [Concomitant]
     Route: 048

REACTIONS (1)
  - DEATH [None]
